FAERS Safety Report 8609087-3 (Version None)
Quarter: 2012Q3

REPORT INFORMATION
  Report Type: 
  Country: None (occurrence: None)
  Receive Date: 20120821
  Receipt Date: 20120808
  Transmission Date: 20120928
  Serious: No
  Sender: FDA-Public Use
  Company Number: US-ASTRAZENECA-2012SE55967

PATIENT
  Age: 17 Year
  Sex: Male

DRUGS (6)
  1. SEROQUEL [Suspect]
     Route: 048
     Dates: start: 20120808
  2. CONCERTA [Concomitant]
     Indication: ATTENTION DEFICIT/HYPERACTIVITY DISORDER
     Route: 048
  3. SEROQUEL [Suspect]
     Indication: BIPOLAR DISORDER
     Dosage: TITRATED UP TO 300 MG DAILY IN THE EVENING
     Route: 048
     Dates: start: 20120723
  4. INTUNIVE [Concomitant]
     Indication: IMPULSE-CONTROL DISORDER
     Route: 048
  5. DEPAKOTE [Concomitant]
     Indication: AFFECTIVE DISORDER
     Route: 048
  6. CELEXA [Concomitant]
     Indication: ANXIETY
     Route: 048

REACTIONS (5)
  - OFF LABEL USE [None]
  - MANIA [None]
  - IMPULSIVE BEHAVIOUR [None]
  - TACHYPHRENIA [None]
  - DRUG INEFFECTIVE [None]
